FAERS Safety Report 23621439 (Version 1)
Quarter: 2024Q1

REPORT INFORMATION
  Report Type: Spontaneous
  Country: FR (occurrence: FR)
  Receive Date: 20240312
  Receipt Date: 20240312
  Transmission Date: 20240410
  Serious: Yes (Other)
  Sender: FDA-Public Use
  Company Number: FR-AFSSAPS-AM2024000142

PATIENT
  Age: 58 Year
  Sex: Female

DRUGS (7)
  1. PAROXETINE [Suspect]
     Active Substance: PAROXETINE
     Indication: Depression
     Dosage: 40 MILLIGRAM, ONCE A DAY
     Route: 048
     Dates: start: 20230926, end: 20240202
  2. MIRTAZAPINE [Suspect]
     Active Substance: MIRTAZAPINE
     Indication: Depression
     Dosage: 45 MILLIGRAM, ONCE A DAY
     Route: 048
     Dates: start: 20230829
  3. QUETIAPINE [Concomitant]
     Active Substance: QUETIAPINE
     Indication: Product used for unknown indication
     Dosage: UNK
     Route: 065
  4. CARBAMAZEPINE [Concomitant]
     Active Substance: CARBAMAZEPINE
     Indication: Product used for unknown indication
     Dosage: UNK
     Route: 065
  5. METFORMIN PAMOATE [Concomitant]
     Active Substance: METFORMIN PAMOATE
     Indication: Product used for unknown indication
     Dosage: UNK
     Route: 065
  6. JANUVIA [Concomitant]
     Active Substance: SITAGLIPTIN PHOSPHATE
     Indication: Product used for unknown indication
     Dosage: UNK
     Route: 065
  7. NICOPATCH [Concomitant]
     Active Substance: NICOTINE
     Indication: Product used for unknown indication
     Dosage: UNK
     Route: 065

REACTIONS (2)
  - Subcutaneous haematoma [Recovered/Resolved]
  - Epistaxis [Recovered/Resolved]

NARRATIVE: CASE EVENT DATE: 20240115
